FAERS Safety Report 18681622 (Version 1)
Quarter: 2020Q4

REPORT INFORMATION
  Report Type: Spontaneous
  Country: US (occurrence: US)
  Receive Date: 20201230
  Receipt Date: 20201230
  Transmission Date: 20210114
  Serious: Yes (Other)
  Sender: FDA-Public Use
  Company Number: US-CELGENEUS-USA-20201208276

PATIENT
  Sex: Female

DRUGS (5)
  1. POMALYST [Suspect]
     Active Substance: POMALIDOMIDE
     Indication: PLASMA CELL MYELOMA
     Dosage: 4 MILLIGRAMS
     Route: 048
     Dates: start: 201604
  2. POMALYST [Suspect]
     Active Substance: POMALIDOMIDE
     Dosage: 4-3 MILLIGRAMS
     Route: 048
     Dates: start: 201808
  3. POMALYST [Suspect]
     Active Substance: POMALIDOMIDE
     Dosage: 3-2 MILLIGRAMS
     Route: 048
     Dates: start: 201605
  4. POMALYST [Suspect]
     Active Substance: POMALIDOMIDE
     Dosage: 1-2 MILLIGRAMS
     Route: 048
     Dates: start: 201607
  5. POMALYST [Suspect]
     Active Substance: POMALIDOMIDE
     Dosage: 2 MILLIGRAMS
     Route: 048
     Dates: start: 202007

REACTIONS (1)
  - Cataract [Unknown]
